FAERS Safety Report 25308293 (Version 1)
Quarter: 2025Q2

REPORT INFORMATION
  Report Type: Spontaneous
  Country: US (occurrence: US)
  Receive Date: 20250513
  Receipt Date: 20250513
  Transmission Date: 20250717
  Serious: Yes (Other)
  Sender: SANOFI AVENTIS
  Company Number: US-SANOFI-02506285

PATIENT
  Age: 84 Year
  Sex: Female
  Weight: 47.166 kg

DRUGS (12)
  1. DUPIXENT [Suspect]
     Active Substance: DUPILUMAB
     Indication: Dermatitis atopic
     Dosage: 300 MG, QOW
     Route: 058
     Dates: start: 20241118
  2. METHYLPREDNISOLONE [Concomitant]
     Active Substance: METHYLPREDNISOLONE
  3. METHOCARBAMOL [Concomitant]
     Active Substance: METHOCARBAMOL
  4. LIDOCAINE [Concomitant]
     Active Substance: LIDOCAINE
  5. ONDANSETRON [Concomitant]
     Active Substance: ONDANSETRON
  6. ESCITALOPRAM OXALATE [Concomitant]
     Active Substance: ESCITALOPRAM OXALATE
  7. LORAZEPAM [Concomitant]
     Active Substance: LORAZEPAM
  8. PRAVASTATIN SODIUM [Concomitant]
     Active Substance: PRAVASTATIN SODIUM
  9. TRAZODONE [Concomitant]
     Active Substance: TRAZODONE HYDROCHLORIDE
  10. BUTALBITAL AND ACETAMINOPHEN [Concomitant]
     Active Substance: ACETAMINOPHEN\BUTALBITAL
  11. RAMELTEON [Concomitant]
     Active Substance: RAMELTEON
  12. PROPRANOLOL [Concomitant]
     Active Substance: PROPRANOLOL HYDROCHLORIDE

REACTIONS (3)
  - Spinal operation [Unknown]
  - Accidental exposure to product [Unknown]
  - Exposure via skin contact [Unknown]
